FAERS Safety Report 9458334 (Version 1)
Quarter: 2013Q3

REPORT INFORMATION
  Report Type: Spontaneous
  Country: DE (occurrence: DE)
  Receive Date: 20130814
  Receipt Date: 20130814
  Transmission Date: 20140515
  Serious: Yes (Hospitalization, Other)
  Sender: FDA-Public Use
  Company Number: DE-ELI_LILLY_AND_COMPANY-DE201308001182

PATIENT
  Age: 67 Year
  Sex: Male

DRUGS (9)
  1. HUMALOG LISPRO [Suspect]
     Indication: DIABETES MELLITUS
     Dosage: UNK
     Route: 058
     Dates: start: 201108
  2. LISINOPRIL [Concomitant]
  3. AMLODIPINE [Concomitant]
  4. PANTOPRAZOLE [Concomitant]
  5. PROTAPHANE [Concomitant]
  6. DOXAZOSIN [Concomitant]
  7. CITALOPRAM [Concomitant]
  8. INUVAIR [Concomitant]
  9. SALBUTAMOL [Concomitant]

REACTIONS (4)
  - Arrhythmia [Recovered/Resolved]
  - Cardiac valve disease [Recovered/Resolved]
  - Blood glucose decreased [Recovered/Resolved]
  - Incorrect dose administered [Recovered/Resolved]
